FAERS Safety Report 6455490-X (Version None)
Quarter: 2009Q4

REPORT INFORMATION
  Report Type: 
  Country: None (occurrence: None)
  Receive Date: 20091125
  Receipt Date: 20091007
  Transmission Date: 20100525
  Serious: No
  Sender: FDA-Public Use
  Company Number: US-ABBOTT-09P-163-0601215-00

PATIENT
  Sex: Female

DRUGS (3)
  1. SIMCOR [Suspect]
     Indication: BLOOD CHOLESTEROL INCREASED
     Dosage: 500/20MG AT BEDTIME
  2. NIACIN [Suspect]
     Indication: DRUG USE FOR UNKNOWN INDICATION
     Dosage: TAKES WITH SIMCOR
  3. NIACIN [Suspect]
     Dosage: TAKES WITH SIMCOR

REACTIONS (1)
  - PAIN IN EXTREMITY [None]
